FAERS Safety Report 18467535 (Version 1)
Quarter: 2020Q4

REPORT INFORMATION
  Report Type: Spontaneous
  Country: US (occurrence: US)
  Receive Date: 20201105
  Receipt Date: 20201105
  Transmission Date: 20210114
  Serious: Yes (Hospitalization)
  Sender: FDA-Public Use
  Company Number: US-009507513-2011USA000636

PATIENT
  Sex: Male

DRUGS (6)
  1. PLETAL [Suspect]
     Active Substance: CILOSTAZOL
     Indication: PRODUCT USED FOR UNKNOWN INDICATION
     Dosage: DOSAGE FORM: UNKNOWN
     Route: 065
  2. IBUPROFEN. [Suspect]
     Active Substance: IBUPROFEN
     Indication: ARTHRITIS
     Dosage: DOSAGE FORM: UNSPECIFIED, LAST YEAR ON A DAILY BASIS, SOMETIMES MORE THAN 4 PILLS A DAY
     Route: 065
  3. XARELTO [Suspect]
     Active Substance: RIVAROXABAN
     Indication: ATRIAL FIBRILLATION
  4. PLAVIX [Suspect]
     Active Substance: CLOPIDOGREL BISULFATE
     Indication: PRODUCT USED FOR UNKNOWN INDICATION
     Dosage: DOSAGE FORM: UNSPECIFIED
     Route: 065
  5. PRINIVIL [Suspect]
     Active Substance: LISINOPRIL
     Indication: PRODUCT USED FOR UNKNOWN INDICATION
     Dosage: DOSAGE FORM: UNSPECIFIED
     Route: 065
  6. XARELTO [Suspect]
     Active Substance: RIVAROXABAN
     Indication: CEREBROVASCULAR ACCIDENT PROPHYLAXIS
     Dosage: UNK
     Route: 065

REACTIONS (13)
  - Hypertension [Unknown]
  - Acute kidney injury [Unknown]
  - Cardiac stress test abnormal [Unknown]
  - Atrial flutter [Unknown]
  - Renal artery stenosis [Unknown]
  - Prostatomegaly [Unknown]
  - Atrial fibrillation [Unknown]
  - Cardiac failure congestive [Unknown]
  - Obstructive nephropathy [Unknown]
  - Anaemia [Unknown]
  - Hyponatraemia [Unknown]
  - Upper gastrointestinal haemorrhage [Unknown]
  - Dyslipidaemia [Unknown]
